FAERS Safety Report 13704039 (Version 1)
Quarter: 2017Q2

REPORT INFORMATION
  Report Type: Spontaneous
  Country: US (occurrence: US)
  Receive Date: 20170629
  Receipt Date: 20170629
  Transmission Date: 20170830
  Serious: Yes (Life-Threatening, Hospitalization, Other)
  Sender: FDA-Public Use
  Company Number: US-JNJFOC-20170623258

PATIENT
  Age: 34 Year
  Sex: Female

DRUGS (2)
  1. LOPERAMIDE [Suspect]
     Active Substance: LOPERAMIDE
     Route: 065
  2. LOPERAMIDE [Suspect]
     Active Substance: LOPERAMIDE
     Indication: WITHDRAWAL SYNDROME
     Route: 065

REACTIONS (9)
  - Syncope [Unknown]
  - Electrocardiogram QT prolonged [Recovering/Resolving]
  - Ejection fraction decreased [Recovering/Resolving]
  - Intentional overdose [Unknown]
  - Drug use disorder [Unknown]
  - Arrhythmia [Recovering/Resolving]
  - Electrocardiogram QRS complex prolonged [Recovering/Resolving]
  - Ventricular hypokinesia [Recovering/Resolving]
  - Pulse absent [Recovering/Resolving]
